FAERS Safety Report 9588098 (Version 1)
Quarter: 2013Q4

REPORT INFORMATION
  Report Type: Spontaneous
  Country: US (occurrence: US)
  Receive Date: 20131003
  Receipt Date: 20131003
  Transmission Date: 20140711
  Serious: No
  Sender: FDA-Public Use
  Company Number: US-AMGEN-USASP2012068690

PATIENT
  Sex: Female

DRUGS (12)
  1. ENBREL [Suspect]
     Indication: RHEUMATOID ARTHRITIS
     Dosage: 25 MG, 2 TIMES/WK
     Route: 058
  2. METHOTREXATE [Concomitant]
     Dosage: 2.5 MG, UNK
  3. FOLIC ACID [Concomitant]
     Dosage: UNK
  4. INDAPAMID [Concomitant]
     Dosage: 1.25 MG, UNK
  5. SIMVASTATIN [Concomitant]
     Dosage: 20 MG, UNK
  6. ALLEGRA [Concomitant]
     Dosage: 180 MG, UNK
  7. ASTEPRO [Concomitant]
     Dosage: 0.15 %, UNK
  8. ADVAIR [Concomitant]
     Dosage: 250/50
  9. PROVENTIL                          /00139501/ [Concomitant]
     Dosage: 0.083 %, UNK
  10. CALCIUM +VIT D [Concomitant]
     Dosage: UNK
  11. MULTIVITAMINS, PLAIN [Concomitant]
     Dosage: UNK
  12. LOTREL [Concomitant]
     Dosage: 10-20

REACTIONS (1)
  - Infection [Recovered/Resolved]
